FAERS Safety Report 9757474 (Version 2)
Quarter: 2013Q4

REPORT INFORMATION
  Report Type: Spontaneous
  Country: US (occurrence: US)
  Receive Date: 20131215
  Receipt Date: 20131218
  Transmission Date: 20140711
  Serious: Yes (Death)
  Sender: FDA-Public Use
  Company Number: US-BRISTOL-MYERS SQUIBB COMPANY-19884097

PATIENT
  Sex: 0

DRUGS (2)
  1. SPRYCEL [Suspect]
  2. DEXAMETHASONE [Suspect]

REACTIONS (1)
  - Pulmonary oedema [Fatal]
